FAERS Safety Report 16634687 (Version 1)
Quarter: 2019Q3

REPORT INFORMATION
  Report Type: Spontaneous
  Country: FR (occurrence: FR)
  Receive Date: 20190726
  Receipt Date: 20190726
  Transmission Date: 20191004
  Serious: Yes (Other)
  Sender: FDA-Public Use
  Company Number: FR-LUPIN PHARMACEUTICALS INC.-2019-04619

PATIENT
  Age: 85 Year

DRUGS (1)
  1. CEFTRIAXONE INJECTION [Suspect]
     Active Substance: CEFTRIAXONE SODIUM
     Indication: DEVICE RELATED INFECTION
     Dosage: 1 GRAM, QD
     Route: 058

REACTIONS (2)
  - Skin necrosis [Unknown]
  - Product use issue [Unknown]
